FAERS Safety Report 6575989-5 (Version None)
Quarter: 2010Q1

REPORT INFORMATION
  Report Type: 
  Country: None (occurrence: None)
  Receive Date: 20100209
  Receipt Date: 20100203
  Transmission Date: 20100710
  Serious: Yes (Hospitalization)
  Sender: FDA-Public Use
  Company Number: US-GENENTECH-297688

PATIENT
  Sex: Male
  Weight: 96.8 kg

DRUGS (6)
  1. RITUXAN [Suspect]
     Indication: NON-HODGKIN'S LYMPHOMA
     Dosage: UNK
     Route: 042
     Dates: start: 20100106
  2. RITUXAN [Suspect]
     Indication: WALDENSTROM'S MACROGLOBULINAEMIA
  3. BLOOD PRESSURE MEDICATION NOS [Concomitant]
     Indication: DRUG USE FOR UNKNOWN INDICATION
  4. VITAMIN C [Concomitant]
     Indication: DRUG USE FOR UNKNOWN INDICATION
  5. MULTI-VITAMIN [Concomitant]
     Indication: DRUG USE FOR UNKNOWN INDICATION
  6. IV STEROID [Concomitant]
     Indication: DRUG USE FOR UNKNOWN INDICATION

REACTIONS (3)
  - DYSPHONIA [None]
  - ERYTHEMA [None]
  - RENAL HAEMORRHAGE [None]
